FAERS Safety Report 7632152 (Version 4)
Quarter: 2013Q4

REPORT INFORMATION
  Report Type: Report from Study
  Country: DE (occurrence: DE)
  Receive Date: 20101018
  Receipt Date: 20131211
  Transmission Date: 20140711
  Serious: Yes (Hospitalization)
  Sender: FDA-Public Use
  Company Number: DE-ROCHE-733631

PATIENT
  Age: 54 Year
  Sex: Female
  Weight: 80 kg

DRUGS (11)
  1. BEVACIZUMAB [Suspect]
     Indication: HER-2 POSITIVE BREAST CANCER
     Dosage: DOSE LEVEL 15MG/KG, FORM VIAL LAST DOSE PRIOT TO SAE 29/SEP/2010
     Route: 042
     Dates: start: 20100617
  2. TRASTUZUMAB [Suspect]
     Indication: HER-2 POSITIVE BREAST CANCER
     Dosage: LOADING DOSE
     Route: 042
  3. TRASTUZUMAB [Suspect]
     Dosage: DOSE LEVEL 6MG/KG FORM VIAL LAST DOSE PRIOR TO SAE 29/SEP/2010
     Route: 042
     Dates: start: 20100616
  4. DOCETAXEL [Suspect]
     Indication: HER-2 POSITIVE BREAST CANCER
     Dosage: DOSE LEVEL 75 MG/M2, FORM VIALS, LAST DOSE PRIOR TO SAE ON 29 SEP 2010
     Route: 042
  5. CARBOPLATIN [Suspect]
     Indication: HER-2 POSITIVE BREAST CANCER
     Dosage: DOSE LEVEL 6 AUC, FORM VIALS, LAST DOSE PRIOR TO SAE 29 SEP 2010
     Route: 042
  6. METFORMIN [Concomitant]
     Route: 065
     Dates: start: 200408, end: 20100511
  7. CIPROFLOXACIN [Concomitant]
     Route: 065
     Dates: start: 20101011
  8. BENZOCAINE/CETYLPYRIDINIUM CHLORIDE [Concomitant]
     Route: 065
     Dates: start: 20101011, end: 20101012
  9. SPASMO-MUCOSOLVAN [Concomitant]
     Route: 065
     Dates: start: 20101012, end: 20101015
  10. ACETYLCYSTEINE [Concomitant]
     Route: 065
     Dates: start: 20101012, end: 20101015
  11. DEXAMETHASONE [Concomitant]
     Route: 065
     Dates: start: 20101014, end: 20101018

REACTIONS (1)
  - Thrombocytopenia [Recovered/Resolved]
